FAERS Safety Report 12239369 (Version 1)
Quarter: 2016Q2

REPORT INFORMATION
  Report Type: Spontaneous
  Country: US (occurrence: US)
  Receive Date: 20160405
  Receipt Date: 20160405
  Transmission Date: 20160815
  Serious: No
  Sender: FDA-Public Use
  Company Number: US-ELI_LILLY_AND_COMPANY-US201603008594

PATIENT
  Age: 47 Year
  Sex: Female

DRUGS (7)
  1. HUMALOG [Suspect]
     Active Substance: INSULIN LISPRO
     Indication: TYPE 1 DIABETES MELLITUS
     Dosage: UNK, UNKNOWN
     Route: 058
     Dates: start: 2005
  2. HUMALOG [Suspect]
     Active Substance: INSULIN LISPRO
     Dosage: 1.5 U, 7 PM
     Route: 058
     Dates: start: 20160320
  3. HUMALOG [Suspect]
     Active Substance: INSULIN LISPRO
     Dosage: 1 U, SLIDING SCALE
     Route: 058
     Dates: start: 20160320
  4. HUMALOG [Suspect]
     Active Substance: INSULIN LISPRO
     Dosage: 1.5 U, 7 AM
     Route: 058
     Dates: start: 20160320
  5. HUMALOG [Suspect]
     Active Substance: INSULIN LISPRO
     Dosage: 1.825 U, 12 AM
     Route: 058
     Dates: start: 20160320
  6. HUMALOG [Suspect]
     Active Substance: INSULIN LISPRO
     Dosage: 2 U, 2 AM
     Route: 058
     Dates: start: 20160320
  7. HUMALOG [Suspect]
     Active Substance: INSULIN LISPRO
     Dosage: UNK, UNKNOWN
     Route: 058

REACTIONS (3)
  - Drug ineffective [Unknown]
  - Intentional product misuse [Unknown]
  - Blood glucose increased [Recovered/Resolved]

NARRATIVE: CASE EVENT DATE: 20160314
